FAERS Safety Report 8521015-8 (Version None)
Quarter: 2012Q3

REPORT INFORMATION
  Report Type: 
  Country: None (occurrence: None)
  Receive Date: 20120712
  Receipt Date: 20120712
  Transmission Date: 20120928
  Serious: Yes (Life-Threatening, Hospitalization, Other)
  Sender: FDA-Public Use
  Company Number: None

PATIENT
  Age: 33 Year
  Sex: Female
  Weight: 90.7194 kg

DRUGS (1)
  1. NEOCON [Suspect]
     Indication: MENSTRUATION IRREGULAR
     Dosage: 1 TABLET ONCE A DAY PO
     Route: 048
     Dates: start: 20120503, end: 20120630

REACTIONS (1)
  - PULMONARY EMBOLISM [None]
